FAERS Safety Report 6545434-4 (Version None)
Quarter: 2010Q1

REPORT INFORMATION
  Report Type: 
  Country: None (occurrence: None)
  Receive Date: 20100121
  Receipt Date: 20100113
  Transmission Date: 20100710
  Serious: Yes (Other)
  Sender: FDA-Public Use
  Company Number: US-PFIZER INC-2010006931

PATIENT
  Sex: Female

DRUGS (4)
  1. LIPITOR [Suspect]
     Indication: BLOOD CHOLESTEROL INCREASED
     Dosage: 10 MG, 1X/DAY
     Route: 048
     Dates: start: 19970101
  2. ATENOLOL [Concomitant]
     Indication: HYPERTENSION
     Dosage: FREQUENCY: 2X/DAY,
     Route: 048
  3. BENAZEPRIL [Concomitant]
     Indication: HYPERTENSION
     Dosage: FREQUENCY: 2X/DAY,
     Route: 048
     Dates: start: 20080101
  4. SIL-NORBORAL [Concomitant]
     Indication: DIABETES MELLITUS
     Dosage: FREQUENCY: 2X/DAY,
     Route: 048
     Dates: start: 20080101

REACTIONS (2)
  - DIABETES MELLITUS [None]
  - DIARRHOEA [None]
